FAERS Safety Report 17007133 (Version 1)
Quarter: 2019Q4

REPORT INFORMATION
  Report Type: Spontaneous
  Country: US (occurrence: US)
  Receive Date: 20190927
  Receipt Date: 20190927
  Transmission Date: 20200122
  Serious: No
  Sender: FDA-Public Use
  Company Number: None

PATIENT
  Age: 48 Year
  Sex: Male
  Weight: 99.79 kg

DRUGS (1)
  1. ARIPRAZOLOE 2MG TEVA [Suspect]
     Active Substance: ARIPIPRAZOLE
     Indication: SCHIZOPHRENIA
     Route: 048
     Dates: start: 201509

REACTIONS (3)
  - Product substitution issue [None]
  - Nausea [None]
  - Rash [None]

NARRATIVE: CASE EVENT DATE: 20150918
